FAERS Safety Report 9245408 (Version 1)
Quarter: 2013Q2

REPORT INFORMATION
  Report Type: Spontaneous
  Country: PE (occurrence: PE)
  Receive Date: 20130422
  Receipt Date: 20130422
  Transmission Date: 20140414
  Serious: Yes (Other)
  Sender: FDA-Public Use
  Company Number: PE-PFIZER INC-2013125068

PATIENT
  Age: 88 Year
  Sex: Male

DRUGS (2)
  1. DEBRIDAT [Suspect]
     Route: 048
  2. NORVASTOR [Suspect]
     Route: 048

REACTIONS (1)
  - Surgery [Unknown]
